FAERS Safety Report 7505693-8 (Version None)
Quarter: 2011Q2

REPORT INFORMATION
  Report Type: 
  Country: None (occurrence: None)
  Receive Date: 20110526
  Receipt Date: 20110512
  Transmission Date: 20111010
  Serious: Yes (Hospitalization)
  Sender: FDA-Public Use
  Company Number: FR-PFIZER INC-2006150637

PATIENT
  Age: 17 Year
  Sex: Female

DRUGS (8)
  1. ACETAMINOPHEN [Suspect]
     Indication: INTENTIONAL OVERDOSE
     Dosage: 2.5 GRAMS ONCE
     Route: 048
     Dates: start: 20061015, end: 20061015
  2. XANAX [Suspect]
     Indication: INTENTIONAL OVERDOSE
     Dosage: 2.5 GRAMS ONCE
     Route: 048
     Dates: start: 20061015, end: 20061015
  3. IBUPROFEN [Suspect]
     Indication: INTENTIONAL OVERDOSE
     Dosage: 20 TABLETS (4,000 MG) ONCE
     Route: 048
     Dates: start: 20061015, end: 20061015
  4. ACECLOFENAC [Suspect]
     Indication: INTENTIONAL OVERDOSE
     Dosage: 14 UNITS ONCE
     Route: 048
     Dates: start: 20061015, end: 20061015
  5. CHLOROQUINE PHOSPHATE [Suspect]
     Indication: INTENTIONAL OVERDOSE
     Route: 048
     Dates: start: 20061015, end: 20061015
  6. METRONIDAZOLE [Suspect]
     Indication: INTENTIONAL OVERDOSE
     Dosage: UNKNOWN ONCE
     Route: 048
     Dates: start: 20061015, end: 20061015
  7. VOLTAREN [Suspect]
     Indication: INTENTIONAL OVERDOSE
     Dosage: 250 MG ONCE
     Route: 048
     Dates: start: 20061015, end: 20061015
  8. PSEUDOEPHEDRINE HCL [Suspect]
     Indication: INTENTIONAL OVERDOSE
     Dosage: 900 MG - 15 TABLETS ONCE
     Route: 048
     Dates: start: 20061015, end: 20061015

REACTIONS (6)
  - INTENTIONAL OVERDOSE [None]
  - NAUSEA [None]
  - PALLOR [None]
  - DIARRHOEA [None]
  - ASTHENIA [None]
  - VOMITING [None]
